FAERS Safety Report 10159135 (Version 1)
Quarter: 2014Q2

REPORT INFORMATION
  Report Type: Spontaneous
  Country: US (occurrence: None)
  Receive Date: 20140507
  Receipt Date: 20140507
  Transmission Date: 20141212
  Serious: Yes (Life-Threatening)
  Sender: FDA-Public Use
  Company Number: None

PATIENT
  Age: 61 Year
  Sex: Female
  Weight: 95.71 kg

DRUGS (1)
  1. AVONEX [Suspect]
     Indication: PRODUCT USED FOR UNKNOWN INDICATION
     Dates: start: 2012

REACTIONS (5)
  - Post procedural complication [None]
  - Thrombosis [None]
  - Loss of consciousness [None]
  - Lower limb fracture [None]
  - Ankle fracture [None]
